FAERS Safety Report 19112308 (Version 1)
Quarter: 2021Q2

REPORT INFORMATION
  Report Type: Report from Study
  Country: FR (occurrence: FR)
  Receive Date: 20210409
  Receipt Date: 20210409
  Transmission Date: 20210717
  Serious: Yes (Other)
  Sender: FDA-Public Use
  Company Number: FR-SUN PHARMACEUTICAL INDUSTRIES LTD-2021R1-289710

PATIENT
  Age: 64 Year
  Sex: Female

DRUGS (1)
  1. PREGABALIN. [Suspect]
     Active Substance: PREGABALIN
     Indication: PERIPHERAL MOTOR NEUROPATHY
     Dosage: UNK
     Route: 065

REACTIONS (1)
  - Parkinsonism [Recovered/Resolved]
